FAERS Safety Report 7530186-1 (Version None)
Quarter: 2011Q2

REPORT INFORMATION
  Report Type: 
  Country: None (occurrence: None)
  Receive Date: 20110607
  Receipt Date: 20110527
  Transmission Date: 20111010
  Serious: Yes (Other)
  Sender: FDA-Public Use
  Company Number: PHHY2011ES46051

PATIENT
  Age: 64 Year
  Sex: Male

DRUGS (9)
  1. ALLOPURINOL [Concomitant]
     Indication: HYPERURICAEMIA
     Dosage: 300 MG, QD
     Route: 048
     Dates: start: 20110121
  2. SIMVASTATIN [Concomitant]
     Indication: DYSLIPIDAEMIA
     Dosage: UNK
     Dates: start: 20080101
  3. OSELTAMIVIR [Concomitant]
     Indication: H1N1 INFLUENZA
     Dosage: 300 MG, UNK
     Dates: start: 20110121, end: 20110124
  4. CARVEDILOL [Concomitant]
     Indication: HYPERTENSION
     Dosage: 6.2 MG, QD
     Route: 048
  5. REVATIO [Concomitant]
     Indication: PULMONARY HYPERTENSION
     Dosage: 20 MG, TID
     Route: 048
  6. SINTROM [Suspect]
     Dosage: UNK
     Dates: end: 20110124
  7. CEFTAZIDIME [Interacting]
     Dosage: 2 G, TID
     Dates: start: 20110121, end: 20110124
  8. ASPIRIN [Interacting]
     Dosage: 100 MG, QD
     Dates: start: 20110121
  9. INSULIN [Concomitant]
     Indication: DIABETES MELLITUS
     Dosage: UNK
     Route: 058
     Dates: start: 20050101

REACTIONS (2)
  - HAEMATURIA [None]
  - DRUG INTERACTION [None]
